FAERS Safety Report 22930402 (Version 2)
Quarter: 2024Q1

REPORT INFORMATION
  Report Type: Spontaneous
  Country: CA (occurrence: CA)
  Receive Date: 20230911
  Receipt Date: 20240125
  Transmission Date: 20240409
  Serious: Yes (Other)
  Sender: FDA-Public Use
  Company Number: CA-TAKEDA-2023TUS086701

PATIENT
  Age: 24 Year
  Sex: Female
  Weight: 79 kg

DRUGS (4)
  1. PANTOPRAZOLE [Suspect]
     Active Substance: PANTOPRAZOLE
     Dosage: UNK
     Route: 065
  2. OCRELIZUMAB [Suspect]
     Active Substance: OCRELIZUMAB
     Indication: Relapsing-remitting multiple sclerosis
     Dosage: 300 MILLIGRAM, EVERY 2 WEEKS
     Route: 042
     Dates: start: 20220420
  3. OCRELIZUMAB [Suspect]
     Active Substance: OCRELIZUMAB
     Dosage: 300 MILLIGRAM
     Route: 042
  4. OCRELIZUMAB [Suspect]
     Active Substance: OCRELIZUMAB
     Dosage: 600 MILLIGRAM, Q6MONTHS
     Route: 042

REACTIONS (5)
  - Fatigue [Recovered/Resolved]
  - Gastrooesophageal reflux disease [Recovered/Resolved]
  - Infusion related reaction [Recovered/Resolved]
  - Syncope [Recovered/Resolved]
  - Throat irritation [Recovered/Resolved]

NARRATIVE: CASE EVENT DATE: 20220406
